FAERS Safety Report 5463330-0 (Version None)
Quarter: 2007Q3

REPORT INFORMATION
  Report Type: 
  Country: None (occurrence: None)
  Receive Date: 20070920
  Receipt Date: 20070910
  Transmission Date: 20080115
  Serious: Yes (Death)
  Sender: FDA-Public Use
  Company Number: DE-PURDUE-DEU_2007_0003616

PATIENT
  Age: 76 Year
  Sex: Male

DRUGS (6)
  1. MST 30 MG MUNDIPHARMA [Suspect]
     Indication: CANCER PAIN
     Dosage: 30 MG, TID
     Route: 048
     Dates: start: 20061201
  2. MST 30 MG MUNDIPHARMA [Suspect]
     Dosage: 30 MG, BID
     Route: 048
     Dates: start: 20060101, end: 20061201
  3. MST 30 MG MUNDIPHARMA [Suspect]
     Dosage: UNK, UNK
     Route: 048
  4. ANTINEOPLASTIC AND IMMUNOSUPPRESSIVE AGENTS [Concomitant]
  5. IBUPROFEN [Concomitant]
  6. TRAMADOLOR [Concomitant]

REACTIONS (5)
  - BRAIN OEDEMA [None]
  - COMPLETED SUICIDE [None]
  - INTENTIONAL OVERDOSE [None]
  - PULMONARY OEDEMA [None]
  - RESPIRATORY ARREST [None]
